FAERS Safety Report 5037558-8 (Version None)
Quarter: 2006Q2

REPORT INFORMATION
  Report Type: 
  Country: None (occurrence: None)
  Receive Date: 20060628
  Receipt Date: 20060613
  Transmission Date: 20061013
  Serious: No
  Sender: FDA-Public Use
  Company Number: US-GLAXOSMITHKLINE-A0608851A

PATIENT
  Sex: Male

DRUGS (4)
  1. COREG [Suspect]
     Indication: CARDIAC FAILURE CONGESTIVE
     Dosage: 12.5MG TWICE PER DAY
     Route: 048
  2. COUMADIN [Concomitant]
  3. VASOTEC [Concomitant]
  4. LASIX [Concomitant]

REACTIONS (2)
  - DRUG INEFFECTIVE [None]
  - MALABSORPTION [None]
